FAERS Safety Report 16184192 (Version 1)
Quarter: 2019Q2

REPORT INFORMATION
  Report Type: Spontaneous
  Country: GB (occurrence: GB)
  Receive Date: 20190411
  Receipt Date: 20190411
  Transmission Date: 20190711
  Serious: No
  Sender: FDA-Public Use
  Company Number: GB-ALKEM LABORATORIES LIMITED-GB-ALKEM-2018-08652

PATIENT
  Age: 37 Year
  Sex: Female
  Weight: 65 kg

DRUGS (1)
  1. QUETIAPINE FUMARATE. [Suspect]
     Active Substance: QUETIAPINE FUMARATE
     Indication: AFFECTIVE DISORDER
     Dosage: UNKNOWN
     Route: 065
     Dates: start: 20170725, end: 20180613

REACTIONS (1)
  - Exposure during pregnancy [Unknown]
